FAERS Safety Report 13031319 (Version 1)
Quarter: 2016Q4

REPORT INFORMATION
  Report Type: Spontaneous
  Country: US (occurrence: US)
  Receive Date: 20161215
  Receipt Date: 20161215
  Transmission Date: 20170207
  Serious: Yes (Hospitalization, Other)
  Sender: FDA-Public Use
  Company Number: US-GLAXOSMITHKLINE-US2016185344

PATIENT
  Sex: Female

DRUGS (1)
  1. ADVAIR DISKUS [Suspect]
     Active Substance: FLUTICASONE PROPIONATE\SALMETEROL XINAFOATE
     Indication: BRONCHITIS
     Dosage: 1 PUFF(S), QD
     Route: 055

REACTIONS (5)
  - Acute respiratory failure [Recovering/Resolving]
  - Product use issue [Unknown]
  - Off label use [Unknown]
  - Asthma [Recovering/Resolving]
  - Prescribed underdose [Unknown]
